FAERS Safety Report 12383080 (Version 6)
Quarter: 2017Q1

REPORT INFORMATION
  Report Type: Report from Study
  Country: US (occurrence: US)
  Receive Date: 20160518
  Receipt Date: 20170203
  Transmission Date: 20170428
  Serious: Yes (Death, Hospitalization)
  Sender: FDA-Public Use
  Company Number: US-ACTELION-A-US2016-133475

PATIENT
  Age: 60 Year
  Sex: Female

DRUGS (11)
  1. VELETRI [Suspect]
     Active Substance: EPOPROSTENOL
     Indication: PULMONARY ARTERIAL HYPERTENSION
     Dosage: 6 NG/KG, PER MIN
     Route: 042
     Dates: start: 20160311
  2. METFORMIN [Concomitant]
     Active Substance: METFORMIN HYDROCHLORIDE
  3. VELETRI [Suspect]
     Active Substance: EPOPROSTENOL
     Dosage: 13 NG/KG, PER MIN
     Route: 042
     Dates: end: 20160629
  4. LETAIRIS [Suspect]
     Active Substance: AMBRISENTAN
     Indication: PRODUCT USED FOR UNKNOWN INDICATION
     Dosage: 10 MG, QD
     Route: 065
     Dates: start: 20150916
  5. OXYGEN. [Concomitant]
     Active Substance: OXYGEN
  6. PREDNISONE. [Concomitant]
     Active Substance: PREDNISONE
  7. REVATIO [Concomitant]
     Active Substance: SILDENAFIL CITRATE
  8. ASA [Concomitant]
     Active Substance: ASPIRIN
     Dosage: 325 MG, UNK
  9. INSULIN [Concomitant]
     Active Substance: INSULIN NOS
  10. GABAPENTIN. [Concomitant]
     Active Substance: GABAPENTIN
  11. TYLENOL [Concomitant]
     Active Substance: ACETAMINOPHEN

REACTIONS (31)
  - Migraine [Unknown]
  - Headache [Unknown]
  - Balance disorder [Unknown]
  - Tooth extraction [Unknown]
  - Application site pruritus [Unknown]
  - Flushing [Unknown]
  - Dyspnoea [Unknown]
  - Dyskinesia [Unknown]
  - Nervousness [Not Recovered/Not Resolved]
  - Pain in extremity [Unknown]
  - Sepsis [Not Recovered/Not Resolved]
  - Feeling jittery [Not Recovered/Not Resolved]
  - Tooth disorder [Unknown]
  - Pain in jaw [Unknown]
  - Cerebral infarction [Fatal]
  - Unevaluable event [Unknown]
  - Toothache [Unknown]
  - Catheter site pruritus [Unknown]
  - Complication associated with device [Unknown]
  - Oedema peripheral [Not Recovered/Not Resolved]
  - Feeling cold [Unknown]
  - Anxiety [Unknown]
  - Fatigue [Unknown]
  - Tremor [Unknown]
  - Hot flush [Unknown]
  - Palpitations [Unknown]
  - Muscular weakness [Unknown]
  - Epistaxis [Unknown]
  - Malaise [Unknown]
  - Hyperhidrosis [Unknown]
  - Fall [Unknown]

NARRATIVE: CASE EVENT DATE: 20160320
